FAERS Safety Report 6263297-1 (Version None)
Quarter: 2009Q3

REPORT INFORMATION
  Report Type: 
  Country: None (occurrence: None)
  Receive Date: 20090710
  Receipt Date: 20081209
  Transmission Date: 20100115
  Serious: No
  Sender: FDA-Public Use
  Company Number: A0759731A

PATIENT
  Age: 63 Year
  Sex: Male

DRUGS (14)
  1. REQUIP XL [Suspect]
     Indication: PARKINSON'S DISEASE
     Dosage: 48MG AT NIGHT
     Route: 048
     Dates: start: 20080826, end: 20081101
  2. ACETAMINOPHEN [Concomitant]
  3. ZOLPIDEM [Concomitant]
  4. PHLOGOSOL [Concomitant]
  5. OMEPRAZOLE [Concomitant]
  6. SOTALOL HYDROCHLORIDE [Concomitant]
  7. WARFARIN SODIUM [Concomitant]
  8. POLYCARBOPHIL [Concomitant]
     Dosage: 626MG TWICE PER DAY
  9. IPRATROPIUM BROMIDE [Concomitant]
  10. ALBUTEROL [Concomitant]
  11. ACETAMINOPHEN AND HYDROCODONE BITARTRATE [Concomitant]
  12. LOPERAMIDE HYDROCHLORIDE [Concomitant]
  13. ALUMINIUM HYDROXIDE + MAGNESIUM HYDROXIDE + SIMETHICONE [Concomitant]
  14. SINEMET [Concomitant]
     Dosage: 2TAB SIX TIMES PER DAY

REACTIONS (4)
  - DYSKINESIA [None]
  - MUSCLE RIGIDITY [None]
  - OVERDOSE [None]
  - TREMOR [None]
